FAERS Safety Report 5149532-1 (Version None)
Quarter: 2006Q4

REPORT INFORMATION
  Report Type: 
  Country: None (occurrence: None)
  Receive Date: 20061113
  Receipt Date: 20060324
  Transmission Date: 20070319
  Serious: No
  Sender: FDA-Public Use
  Company Number: US-GLAXOSMITHKLINE-A0598945A

PATIENT
  Age: 75 Year
  Sex: Female
  Weight: 56.8 kg

DRUGS (5)
  1. COREG [Suspect]
     Dosage: 12.5MG TWICE PER DAY
     Route: 048
     Dates: start: 20060301
  2. WARFARIN SODIUM [Concomitant]
     Indication: ATRIAL FIBRILLATION
     Dosage: 3MG PER DAY
     Route: 048
     Dates: start: 20060301
  3. DIGOXIN [Concomitant]
     Dosage: 125MCG PER DAY
     Route: 048
     Dates: start: 20060301
  4. AMIODARONE HCL [Concomitant]
     Dosage: 200MG TWICE PER DAY
     Route: 048
     Dates: start: 20060301
  5. LISINOPRIL [Concomitant]
     Dosage: 2.5MG PER DAY
     Route: 048
     Dates: start: 20060301

REACTIONS (2)
  - DIZZINESS [None]
  - NAUSEA [None]
